FAERS Safety Report 6061554-5 (Version None)
Quarter: 2009Q1

REPORT INFORMATION
  Report Type: 
  Country: None (occurrence: None)
  Receive Date: 20090202
  Receipt Date: 20090119
  Transmission Date: 20090719
  Serious: Yes (Hospitalization)
  Sender: FDA-Public Use
  Company Number: FR-ROCHE-609786

PATIENT
  Sex: Male

DRUGS (8)
  1. ROVALCYTE [Suspect]
     Indication: DRUG USE FOR UNKNOWN INDICATION
     Route: 048
     Dates: end: 20081018
  2. CELLCEPT [Suspect]
     Dosage: TTD: 2 DOSES.
     Route: 048
     Dates: end: 20081021
  3. HYDROCORTISONE [Suspect]
     Indication: DRUG USE FOR UNKNOWN INDICATION
     Dosage: TDD: 2 DOSES.
     Route: 065
     Dates: start: 20081001
  4. PROGRAF [Suspect]
     Indication: DRUG USE FOR UNKNOWN INDICATION
     Dosage: TDD: 2 DOSES.
     Route: 065
     Dates: end: 20081019
  5. PROGRAF [Suspect]
     Route: 065
     Dates: start: 20081101
  6. CALCIT [Concomitant]
  7. MAGNE B6 [Concomitant]
  8. INIPOMP [Concomitant]

REACTIONS (1)
  - ACUTE LEUKAEMIA [None]
